FAERS Safety Report 19490566 (Version 11)
Quarter: 2022Q2

REPORT INFORMATION
  Report Type: Other
  Country: JP (occurrence: JP)
  Receive Date: 20210705
  Receipt Date: 20220429
  Transmission Date: 20220721
  Serious: Yes (Hospitalization, Other)
  Sender: FDA-Public Use
  Company Number: JP-CHUGAI-2021003932AA

PATIENT
  Age: 79 Year
  Sex: Female
  Weight: 36 kg

DRUGS (5)
  1. SATRALIZUMAB [Suspect]
     Active Substance: SATRALIZUMAB
     Indication: Neuromyelitis optica spectrum disorder
     Route: 058
     Dates: start: 20210611, end: 20210709
  2. SATRALIZUMAB [Suspect]
     Active Substance: SATRALIZUMAB
     Route: 058
     Dates: start: 20210806, end: 20220302
  3. PREDONINE [Concomitant]
     Active Substance: PREDNISOLONE
     Indication: Neuromyelitis optica spectrum disorder
     Dosage: 40MG/DAY
     Route: 048
     Dates: start: 20210430
  4. PREDONINE [Concomitant]
     Active Substance: PREDNISOLONE
     Dosage: 7MG/DAY
     Route: 048
  5. PREDONINE [Concomitant]
     Active Substance: PREDNISOLONE
     Route: 065
     Dates: start: 202203

REACTIONS (5)
  - Rectal ulcer [Recovered/Resolved]
  - Blood fibrinogen decreased [Recovered/Resolved]
  - Pulmonary tuberculosis [Recovering/Resolving]
  - Pneumonia [Not Recovered/Not Resolved]
  - Disseminated tuberculosis [Unknown]

NARRATIVE: CASE EVENT DATE: 20210623
